FAERS Safety Report 24861077 (Version 1)
Quarter: 2025Q1

REPORT INFORMATION
  Report Type: Spontaneous
  Country: US (occurrence: US)
  Receive Date: 20250120
  Receipt Date: 20250120
  Transmission Date: 20250408
  Serious: No
  Sender: CURRAX PHARMACEUTICALS
  Company Number: US-CURRAX PHARMACEUTICALS LLC-US-2022CUR021068

PATIENT
  Age: 29 Year
  Sex: Female

DRUGS (4)
  1. CONTRAVE [Suspect]
     Active Substance: BUPROPION HYDROCHLORIDE\NALTREXONE HYDROCHLORIDE
     Indication: Weight control
     Route: 048
     Dates: start: 20220304, end: 202203
  2. CONTRAVE [Suspect]
     Active Substance: BUPROPION HYDROCHLORIDE\NALTREXONE HYDROCHLORIDE
     Dosage: ONE PILL IN THE MORNING AND ONE PILL IN THE EVENING
     Route: 048
     Dates: start: 202203, end: 202203
  3. CONTRAVE [Suspect]
     Active Substance: BUPROPION HYDROCHLORIDE\NALTREXONE HYDROCHLORIDE
     Dosage: TWO PILLS IN THE MORNING AND ONE PILL IN THE EVENING
     Route: 048
     Dates: start: 202203, end: 202203
  4. CONTRAVE [Suspect]
     Active Substance: BUPROPION HYDROCHLORIDE\NALTREXONE HYDROCHLORIDE
     Dosage: ONE PILL IN THE MORNING AND ONE PILL IN THE EVENING
     Route: 048
     Dates: start: 202203

REACTIONS (4)
  - Muscle twitching [Unknown]
  - Unevaluable event [Unknown]
  - Cold sweat [Unknown]
  - Anxiety [Unknown]

NARRATIVE: CASE EVENT DATE: 20220301
